FAERS Safety Report 9969700 (Version 1)
Quarter: 2014Q1

REPORT INFORMATION
  Report Type: Spontaneous
  Country: US (occurrence: None)
  Receive Date: 20140131
  Receipt Date: 20140131
  Transmission Date: 20141002
  Serious: Yes (Other)
  Sender: FDA-Public Use
  Company Number: 089748

PATIENT
  Sex: 0

DRUGS (2)
  1. KEPPRA [Suspect]
     Dosage: (DRUG STRENGTH: 2500 MG)
  2. LACOSAMIDE [Suspect]
     Dosage: (DRUG STRENGTH: 200 MG)
     Dates: start: 201001

REACTIONS (6)
  - Grand mal convulsion [None]
  - Partial seizures [None]
  - Stress [None]
  - Insomnia [None]
  - Fatigue [None]
  - Anger [None]
